FAERS Safety Report 7001778-3 (Version None)
Quarter: 2010Q3

REPORT INFORMATION
  Report Type: 
  Country: None (occurrence: None)
  Receive Date: 20100920
  Receipt Date: 20070613
  Transmission Date: 20110219
  Serious: No
  Sender: FDA-Public Use
  Company Number: US-ASTRAZENECA-2006UW24545

PATIENT
  Age: 644 Month
  Sex: Female
  Weight: 64.9 kg

DRUGS (16)
  1. SEROQUEL [Suspect]
     Indication: BIPOLAR DISORDER
     Route: 048
     Dates: start: 20000101, end: 20060101
  2. SEROQUEL [Suspect]
     Indication: DEPRESSION
     Route: 048
     Dates: start: 20000101, end: 20060101
  3. SEROQUEL [Suspect]
     Indication: ANXIETY
     Route: 048
     Dates: start: 20000101, end: 20060101
  4. SEROQUEL [Suspect]
     Route: 048
     Dates: start: 20050422
  5. SEROQUEL [Suspect]
     Route: 048
     Dates: start: 20050422
  6. SEROQUEL [Suspect]
     Route: 048
     Dates: start: 20050422
  7. ZYPREXA [Suspect]
     Dates: start: 20041227
  8. ABILIFY [Concomitant]
  9. HALDOL [Concomitant]
  10. THORAZINE [Concomitant]
  11. TRILAFON [Concomitant]
  12. LEXAPRO [Concomitant]
  13. XANAX [Concomitant]
  14. VICODIN [Concomitant]
     Dates: start: 20050422
  15. REGLAN [Concomitant]
     Indication: ABDOMINAL PAIN
     Dates: start: 20060403
  16. AMBIEN [Concomitant]
     Dates: start: 20050422

REACTIONS (3)
  - DIVERTICULITIS [None]
  - HYPERGLYCAEMIA [None]
  - TYPE 2 DIABETES MELLITUS [None]
